FAERS Safety Report 6555587-X (Version None)
Quarter: 2010Q1

REPORT INFORMATION
  Report Type: 
  Country: None (occurrence: None)
  Receive Date: 20100128
  Receipt Date: 20100115
  Transmission Date: 20100710
  Serious: Yes (Life-Threatening, Other)
  Sender: FDA-Public Use
  Company Number: JP-BAYER-200914905BYL

PATIENT
  Age: 59 Year
  Sex: Female
  Weight: 61 kg

DRUGS (14)
  1. NEXAVAR [Suspect]
     Indication: RENAL CELL CARCINOMA
     Dosage: UNIT DOSE: 200 MG
     Route: 048
     Dates: start: 20090903, end: 20091020
  2. NEXAVAR [Suspect]
     Dosage: UNIT DOSE: 200 MG
     Route: 048
     Dates: start: 20091110, end: 20091115
  3. NEXAVAR [Suspect]
     Dosage: UNIT DOSE: 200 MG
     Route: 048
     Dates: start: 20091124, end: 20091203
  4. LASIX [Concomitant]
     Dosage: BEFORE
     Route: 048
     Dates: end: 20091203
  5. ALLEGRA [Concomitant]
     Dosage: BERORE
     Route: 048
     Dates: end: 20091203
  6. APLACE [Concomitant]
     Dosage: BEFORE
     Route: 048
     Dates: end: 20091203
  7. NAIXAN [Concomitant]
     Dosage: BEFORE
     Route: 048
     Dates: end: 20091203
  8. PURSENNID [Concomitant]
     Dosage: BEFORE
     Route: 048
  9. CRAVIT [Concomitant]
     Dosage: BEFORE
     Route: 048
  10. SP [Concomitant]
     Dosage: BEFORE
     Route: 048
     Dates: end: 20091203
  11. MUCODYNE [Concomitant]
     Dosage: BEFORE
     Route: 048
     Dates: end: 20091203
  12. HIRUDOID [Concomitant]
     Indication: PROPHYLAXIS
     Route: 061
     Dates: start: 20090903
  13. KERATINAMIN [Concomitant]
     Indication: PROPHYLAXIS
     Route: 061
     Dates: start: 20090903
  14. VOLTAREN [Concomitant]
     Route: 048
     Dates: start: 20091027, end: 20091203

REACTIONS (4)
  - GASTROINTESTINAL HAEMORRHAGE [None]
  - PALMAR-PLANTAR ERYTHRODYSAESTHESIA SYNDROME [None]
  - RASH [None]
  - VENTRICULAR EXTRASYSTOLES [None]
